FAERS Safety Report 18517477 (Version 1)
Quarter: 2020Q4

REPORT INFORMATION
  Report Type: Spontaneous
  Country: GB (occurrence: GB)
  Receive Date: 20201118
  Receipt Date: 20201118
  Transmission Date: 20210114
  Serious: Yes (Life-Threatening, Hospitalization, Other)
  Sender: FDA-Public Use
  Company Number: GB-PFIZER INC-2020454217

PATIENT
  Age: 18 Year
  Sex: Female
  Weight: 50 kg

DRUGS (3)
  1. PARACETAMOL [Concomitant]
     Active Substance: ACETAMINOPHEN
  2. LUSTRAL [Suspect]
     Active Substance: SERTRALINE HYDROCHLORIDE
     Indication: ANXIETY
     Dosage: 50MG THEN 75MG DAILY
     Route: 048
     Dates: start: 201905
  3. LUSTRAL [Suspect]
     Active Substance: SERTRALINE HYDROCHLORIDE
     Dosage: 50MG THEN 75MG DAILY
     Route: 048
     Dates: start: 201905

REACTIONS (3)
  - Hallucination, visual [Recovered/Resolved]
  - Suicidal ideation [Recovered/Resolved with Sequelae]
  - Intentional self-injury [Recovered/Resolved with Sequelae]

NARRATIVE: CASE EVENT DATE: 201905
